FAERS Safety Report 11267438 (Version 1)
Quarter: 2015Q3

REPORT INFORMATION
  Report Type: Report from Study
  Country: MY (occurrence: MY)
  Receive Date: 20150713
  Receipt Date: 20150713
  Transmission Date: 20151125
  Serious: Yes (Death)
  Sender: FDA-Public Use
  Company Number: MY-BAXALTA-2015BAX014046

PATIENT
  Age: 33 Year
  Sex: Male
  Weight: 58.6 kg

DRUGS (3)
  1. PEGYLATED COAGULATION FACTOR VIII [Suspect]
     Active Substance: RURIOCTOCOG ALFA PEGOL
     Indication: FACTOR VIII DEFICIENCY
     Dosage: UNK, ONCE
     Route: 042
     Dates: start: 20141110, end: 20141110
  2. PEGYLATED COAGULATION FACTOR VIII [Suspect]
     Active Substance: RURIOCTOCOG ALFA PEGOL
     Indication: FACTOR VIII DEFICIENCY
     Dosage: UNK, ONCE
     Route: 042
     Dates: start: 20141110, end: 20141110
  3. ARTRODAR [Concomitant]
     Active Substance: DIACEREIN
     Indication: ARTHROPATHY
     Dosage: 50MILLIGRAM2X A DAY
     Route: 048
     Dates: start: 2007

REACTIONS (3)
  - Paternal drugs affecting foetus [Recovered/Resolved]
  - Foetal death [Fatal]
  - Pregnancy of partner [None]

NARRATIVE: CASE EVENT DATE: 20141113
